FAERS Safety Report 21561156 (Version 1)
Quarter: 2022Q4

REPORT INFORMATION
  Report Type: Spontaneous
  Country: US (occurrence: US)
  Receive Date: 20221107
  Receipt Date: 20221107
  Transmission Date: 20230112
  Serious: Yes (Other)
  Sender: FDA-Public Use
  Company Number: US-JNJFOC-20221055860

PATIENT
  Sex: Female
  Weight: 107.60 kg

DRUGS (2)
  1. STELARA [Suspect]
     Active Substance: USTEKINUMAB
     Indication: Colitis ulcerative
     Route: 058
  2. STELARA [Suspect]
     Active Substance: USTEKINUMAB

REACTIONS (4)
  - Type 2 diabetes mellitus [Unknown]
  - Iron deficiency [Unknown]
  - Product dose omission issue [Unknown]
  - Product temperature excursion issue [Unknown]

NARRATIVE: CASE EVENT DATE: 20220101
